FAERS Safety Report 11145465 (Version 1)
Quarter: 2015Q2

REPORT INFORMATION
  Report Type: Spontaneous
  Country: US (occurrence: None)
  Receive Date: 20150526
  Receipt Date: 20150526
  Transmission Date: 20150821
  Serious: Yes (Disabling, Other)
  Sender: FDA-Public Use
  Company Number: None

PATIENT
  Age: 2 Month
  Sex: Male
  Weight: 10.89 kg

DRUGS (1)
  1. BABYS BUTT AID [Suspect]
     Active Substance: ZINC OXIDE
     Indication: DERMATITIS DIAPER
     Dosage: AS NEEDED APPLIED TO A SURFACE, USUALLY THE SKIN
     Route: 061

REACTIONS (2)
  - Eczema [None]
  - Multiple allergies [None]

NARRATIVE: CASE EVENT DATE: 20131101
